FAERS Safety Report 8709220 (Version 3)
Quarter: 2012Q4

REPORT INFORMATION
  Report Type: 
  Country: US (occurrence: US)
  Receive Date: 20120806
  Receipt Date: 20121115
  Transmission Date: 20130627
  Serious: Yes (Death, Hospitalization, Disabling, Other)
  Sender: FDA-Public Use
  Company Number: US-CELGENEUS-163-20785-12073117

PATIENT
  Age: 18 Year
  Sex: Male

DRUGS (30)
  1. THALOMID [Suspect]
     Indication: GASTROINTESTINAL NEOPLASM
     Dosage: 50 Milligram
     Route: 048
     Dates: start: 20090303
  2. THALOMID [Suspect]
     Dosage: 100 Milligram
     Route: 048
     Dates: start: 201012
  3. THALOMID [Suspect]
     Dosage: 150 Milligram
     Route: 048
     Dates: start: 20110123, end: 20120604
  4. OCTREOTIDE [Concomitant]
     Indication: MICROANGIOPATHY
     Dosage: 38 Milligram
     Route: 030
     Dates: start: 20101209
  5. OCTREOTIDE [Concomitant]
     Dosage: 400 Milligram
     Route: 058
     Dates: start: 20101215, end: 201112
  6. PREDNISONE [Concomitant]
     Indication: MICROANGIOPATHY
     Dosage: 30 Milligram
     Route: 058
     Dates: start: 20090126, end: 20100123
  7. HYDROCORTISONE [Concomitant]
     Indication: MICROANGIOPATHY
     Route: 065
     Dates: start: 20100120
  8. RAPAMUNE [Concomitant]
     Indication: MICROANGIOPATHY
     Dosage: 2 Milligram
     Route: 048
     Dates: start: 20090609, end: 200908
  9. PROZAC [Concomitant]
     Indication: DEPRESSION
     Dosage: 10 Milligram
     Route: 048
     Dates: start: 20100913
  10. PROZAC [Concomitant]
     Dosage: 20 Milligram
     Route: 048
     Dates: start: 20110125
  11. CARBATROL [Concomitant]
     Indication: SEIZURES
     Dosage: 250 Milligram
     Route: 048
     Dates: start: 20120604
  12. ZOFRAN [Concomitant]
     Indication: NAUSEA
     Dosage: 4 Milligram
     Route: 048
     Dates: start: 20100524
  13. VALIUM [Concomitant]
     Indication: ANXIETY
     Dosage: 1-2mg
     Route: 065
     Dates: start: 20080824, end: 20080924
  14. VALIUM [Concomitant]
     Dosage: 1-2mg
     Route: 065
     Dates: start: 20100706, end: 20110806
  15. VALIUM [Concomitant]
     Dosage: 1-2mg
     Route: 065
     Dates: start: 201206
  16. VITAMIN D [Concomitant]
     Indication: VITAMIN D DEFICIENCY
     Dosage: 4000 Milligram
     Route: 048
     Dates: end: 20100519
  17. VITAMIN D [Concomitant]
     Dosage: 50000 IU (International Unit)
     Route: 048
     Dates: start: 20100519, end: 20100619
  18. TOPAMAX [Concomitant]
     Indication: SEIZURES
     Dosage: 100 Milligram
     Route: 048
     Dates: start: 20081117
  19. SYNTHROID [Concomitant]
     Indication: HYPOTHYROIDISM
     Dosage: 100 Microgram
     Route: 048
     Dates: start: 201111
  20. PRILOSEC [Concomitant]
     Indication: GASTROESOPHAGEAL REFLUX
     Dosage: 40 Milligram
     Route: 048
     Dates: start: 200812, end: 200911
  21. PRILOSEC [Concomitant]
     Dosage: 80 Milligram
     Route: 048
     Dates: start: 20100106
  22. PROMETHAZINE [Concomitant]
     Indication: NAUSEA
     Dosage: 12.5 Milligram
     Route: 048
  23. VITAMIN K [Concomitant]
     Indication: BLEEDING
     Dosage: 2.5 Milligram
     Route: 048
     Dates: start: 20100418
  24. OXYCODONE [Concomitant]
     Indication: PAIN
     Dosage: 3 Milligram
     Route: 065
  25. MIRALAX [Concomitant]
     Indication: CONSTIPATION
     Dosage: 1-3 doses
     Route: 065
     Dates: start: 2008
  26. KEFLEX [Concomitant]
     Indication: DRUG USE FOR UNKNOWN INDICATION
     Dosage: 1500 Milligram
     Route: 048
     Dates: start: 20120221
  27. ERYTROMYCIN [Concomitant]
     Indication: DRUG THERAPY
     Dosage: 750 Milligram
     Route: 048
     Dates: start: 20090126, end: 20120626
  28. IRON [Concomitant]
     Indication: ANEMIA
     Route: 065
  29. COLACE [Concomitant]
     Indication: CONSTIPATION
     Route: 065
  30. LASIX [Concomitant]
     Indication: EDEMA
     Dosage: 50 Milligram
     Route: 048
     Dates: start: 20120604

REACTIONS (3)
  - Microangiopathy [Fatal]
  - Cardiac failure [Fatal]
  - No therapeutic response [Unknown]
